FAERS Safety Report 20046014 (Version 1)
Quarter: 2021Q4

REPORT INFORMATION
  Report Type: Spontaneous
  Country: US (occurrence: None)
  Receive Date: 20211108
  Receipt Date: 20211108
  Transmission Date: 20220303
  Serious: Yes (Death)
  Sender: FDA-Public Use
  Company Number: None

PATIENT
  Age: 71 Year
  Sex: Female
  Weight: 157 kg

DRUGS (2)
  1. OSIMERTINIB [Suspect]
     Active Substance: OSIMERTINIB
     Dosage: FREQUENCY : DAILY;?
     Route: 048
     Dates: start: 20210505, end: 20210526
  2. ABEMACICLIB [Suspect]
     Active Substance: ABEMACICLIB
     Dosage: FREQUENCY : TWICE A DAY;?
     Route: 048
     Dates: start: 20210505, end: 20210526

REACTIONS (2)
  - Neoplasm progression [None]
  - Pancreatic carcinoma metastatic [None]

NARRATIVE: CASE EVENT DATE: 20210526
